FAERS Safety Report 5675640-2 (Version None)
Quarter: 2008Q1

REPORT INFORMATION
  Report Type: 
  Country: None (occurrence: None)
  Receive Date: 20080321
  Receipt Date: 20080318
  Transmission Date: 20080703
  Serious: Yes (Hospitalization)
  Sender: FDA-Public Use
  Company Number: US-ASTRAZENECA-2008UW01497

PATIENT
  Age: 33 Year
  Sex: Female
  Weight: 51.4 kg

DRUGS (20)
  1. SEROQUEL [Suspect]
     Indication: INTERMITTENT EXPLOSIVE DISORDER
     Route: 048
     Dates: start: 20051017
  2. SEROQUEL [Suspect]
     Dosage: 100 MG HS, 25 MG TID
     Route: 048
     Dates: start: 20051123
  3. SEROQUEL [Suspect]
     Route: 048
     Dates: start: 20060208
  4. SEROQUEL [Suspect]
     Route: 048
     Dates: start: 20060708
  5. SEROQUEL [Suspect]
     Route: 048
     Dates: start: 20060927
  6. SEROQUEL [Suspect]
     Route: 048
     Dates: start: 20061004
  7. DEPAKOTE ER [Suspect]
     Indication: INTERMITTENT EXPLOSIVE DISORDER
     Route: 048
     Dates: start: 20070905
  8. PREVACID [Concomitant]
     Indication: GASTROOESOPHAGEAL REFLUX DISEASE
  9. OSCAL-D [Concomitant]
     Indication: OSTEOPOROSIS
  10. SODIUM PHOSPHATES [Concomitant]
     Indication: CONSTIPATION
  11. DEPO-PROVERA [Concomitant]
     Indication: DYSMENORRHOEA
     Dates: start: 20050516
  12. MIACALCIN [Concomitant]
     Indication: OSTEOPOROSIS
     Route: 045
     Dates: start: 20020605
  13. POLY-VITAMIN [Concomitant]
     Indication: OSTEOPOROSIS
     Dosage: 2 TABL DAILY
     Dates: start: 20020711
  14. ACETAMINOPHEN [Concomitant]
     Indication: PAIN
  15. HYDROXYZINE [Concomitant]
     Indication: XERODERMA
     Dosage: 25 MG QID
  16. NABUMETONE [Concomitant]
     Indication: MENSTRUAL DISCOMFORT
     Dosage: 750 MG BID AS NEEDED
  17. DULCOLAX SUPPOSITORY [Concomitant]
     Indication: CONSTIPATION
     Dosage: Q 3 DAYS PRN
  18. SENOKOT [Concomitant]
     Indication: CONSTIPATION
     Dosage: 2 TABLETS DAILY
  19. PRILOSEC [Concomitant]
     Route: 048
  20. COLASE [Concomitant]

REACTIONS (6)
  - ASTHENIA [None]
  - BODY TEMPERATURE INCREASED [None]
  - DEHYDRATION [None]
  - DRUG EFFECT DECREASED [None]
  - DYSKINESIA [None]
  - HEPATIC ENZYME INCREASED [None]
